FAERS Safety Report 10172748 (Version 3)
Quarter: 2014Q3

REPORT INFORMATION
  Report Type: Spontaneous
  Country: US (occurrence: None)
  Receive Date: 20140513
  Receipt Date: 20140812
  Transmission Date: 20150326
  Serious: Yes (Other)
  Sender: FDA-Public Use
  Company Number: 2014-US-005378

PATIENT
  Age: 57 Year
  Sex: Female

DRUGS (5)
  1. XYREM [Suspect]
     Active Substance: SODIUM OXYBATE
     Indication: NARCOLEPSY
     Route: 048
     Dates: start: 200401, end: 2004
  2. KLONOPIN (CLONAZEPAM) [Concomitant]
  3. PROVIGIL [Concomitant]
     Active Substance: MODAFINIL
  4. GABAPENTIN (NEURONTIN) [Concomitant]
  5. XYREM [Suspect]
     Active Substance: SODIUM OXYBATE
     Indication: CATAPLEXY
     Route: 048
     Dates: start: 200401, end: 2004

REACTIONS (4)
  - Presumed ocular histoplasmosis syndrome [None]
  - Sleep apnoea syndrome [None]
  - Choking [None]
  - Fatigue [None]

NARRATIVE: CASE EVENT DATE: 2013
